FAERS Safety Report 21959810 (Version 4)
Quarter: 2023Q1

REPORT INFORMATION
  Report Type: Spontaneous
  Country: US (occurrence: US)
  Receive Date: 20230206
  Receipt Date: 20230325
  Transmission Date: 20230418
  Serious: Yes (Other)
  Sender: FDA-Public Use
  Company Number: US-002147023-NVSC2023US011437

PATIENT
  Age: 3 Year
  Sex: Male

DRUGS (1)
  1. KYMRIAH [Suspect]
     Active Substance: TISAGENLECLEUCEL
     Indication: Acute lymphocytic leukaemia recurrent
     Dosage: UNK, ONCE/SINGLE
     Route: 042
     Dates: start: 20210723

REACTIONS (7)
  - Chronic graft versus host disease [Unknown]
  - Cytokine release syndrome [Unknown]
  - Pyrexia [Unknown]
  - Eosinophilia [Unknown]
  - Rash erythematous [Unknown]
  - Lichenoid keratosis [Unknown]
  - Rash macular [Unknown]

NARRATIVE: CASE EVENT DATE: 20210726
